FAERS Safety Report 8314620 (Version 2)
Quarter: 2012Q4

REPORT INFORMATION
  Report Type: Report from Study
  Country: DE (occurrence: DE)
  Receive Date: 20111228
  Receipt Date: 20121025
  Transmission Date: 20130627
  Serious: Yes (Other)
  Sender: FDA-Public Use
  Company Number: DE-ELI_LILLY_AND_COMPANY-DE201109008594

PATIENT
  Age: 60 Year
  Sex: Female
  Weight: 60 kg

DRUGS (3)
  1. UNSPECIFIED INGREDIENT [Suspect]
     Indication: NON-SMALL CELL LUNG CANCER
     Dosage: 240 mg, UNK
     Route: 042
     Dates: start: 20110712
  2. PEMETREXED [Suspect]
     Indication: NON-SMALL CELL LUNG CANCER
     Dosage: 500 mg/m2, UNK
     Dates: start: 20110711
  3. CISPLATIN [Suspect]
     Indication: NON-SMALL CELL LUNG CANCER
     Dosage: 75 mg/m2, UNK
     Dates: start: 20110711

REACTIONS (1)
  - Pulmonary embolism [Recovered/Resolved]
